FAERS Safety Report 4672713-8 (Version None)
Quarter: 2005Q2

REPORT INFORMATION
  Report Type: 
  Country: None (occurrence: None)
  Receive Date: 20050524
  Receipt Date: 20050518
  Transmission Date: 20051028
  Serious: Yes (Other)
  Sender: FDA-Public Use
  Company Number: JP-BRISTOL-MYERS SQUIBB COMPANY-12974242

PATIENT
  Age: 42 Year
  Sex: Male

DRUGS (7)
  1. ENDOXAN [Suspect]
     Indication: TESTIS CANCER
     Route: 042
  2. BLEOMYCIN [Suspect]
     Indication: TESTIS CANCER
     Route: 042
  3. BRIPLATIN [Suspect]
     Indication: TESTIS CANCER
     Route: 042
  4. METHOTREXATE [Suspect]
     Indication: TESTIS CANCER
     Route: 042
  5. VEPESID [Suspect]
     Indication: TESTIS CANCER
     Route: 042
  6. EXAL [Suspect]
     Indication: TESTIS CANCER
     Route: 042
  7. COSMEGEN [Suspect]
     Indication: TESTIS CANCER
     Route: 042

REACTIONS (2)
  - RENAL CELL CARCINOMA STAGE UNSPECIFIED [None]
  - TREATMENT RELATED SECONDARY MALIGNANCY [None]
